FAERS Safety Report 12409142 (Version 1)
Quarter: 2016Q2

REPORT INFORMATION
  Report Type: Report from Study
  Country: US (occurrence: US)
  Receive Date: 20160526
  Receipt Date: 20160526
  Transmission Date: 20160815
  Serious: Yes (Other)
  Sender: FDA-Public Use
  Company Number: US-009507513-1605USA009092

PATIENT
  Sex: Female

DRUGS (1)
  1. JANUMET [Suspect]
     Active Substance: METFORMIN HYDROCHLORIDE\SITAGLIPTIN PHOSPHATE
     Route: 048

REACTIONS (6)
  - Drug hypersensitivity [Unknown]
  - Liver injury [Unknown]
  - Urinary tract infection [Unknown]
  - Onychomycosis [Unknown]
  - Blood glucose increased [Unknown]
  - Toothache [Unknown]
